FAERS Safety Report 10309478 (Version 1)
Quarter: 2014Q3

REPORT INFORMATION
  Report Type: Spontaneous
  Country: FR (occurrence: FR)
  Receive Date: 20140717
  Receipt Date: 20140717
  Transmission Date: 20150326
  Serious: Yes (Hospitalization)
  Sender: FDA-Public Use
  Company Number: FR-ROCHE-1436061

PATIENT
  Age: 81 Year
  Sex: Male

DRUGS (15)
  1. ALIMTA [Suspect]
     Active Substance: PEMETREXED DISODIUM
     Indication: METASTASES TO PLEURA
  2. CARBOPLATIN. [Suspect]
     Active Substance: CARBOPLATIN
     Indication: METASTASES TO PLEURA
  3. TADENAN [Concomitant]
     Active Substance: PYGEUM
  4. ALIMTA [Suspect]
     Active Substance: PEMETREXED DISODIUM
     Indication: LUNG ADENOCARCINOMA
     Route: 065
     Dates: start: 20140522
  5. INEXIUM [Concomitant]
     Active Substance: ESOMEPRAZOLE
  6. OMEXEL [Concomitant]
     Active Substance: TAMSULOSIN HYDROCHLORIDE
  7. AVASTIN [Suspect]
     Active Substance: BEVACIZUMAB
     Indication: LUNG ADENOCARCINOMA
     Route: 065
     Dates: start: 20140522
  8. FUROSEMIDE. [Concomitant]
     Active Substance: FUROSEMIDE
  9. TENORDATE [Concomitant]
     Active Substance: ATENOLOL\NIFEDIPINE
  10. COVERSYL [Concomitant]
     Active Substance: PERINDOPRIL
  11. CRESTOR [Concomitant]
     Active Substance: ROSUVASTATIN CALCIUM
  12. AMIODARONE [Concomitant]
     Active Substance: AMIODARONE
  13. AVASTIN [Suspect]
     Active Substance: BEVACIZUMAB
     Indication: METASTASES TO PLEURA
  14. CARBOPLATIN. [Suspect]
     Active Substance: CARBOPLATIN
     Indication: LUNG ADENOCARCINOMA
     Route: 065
     Dates: start: 20140522
  15. PREVISCAN (FRANCE) [Concomitant]
     Active Substance: FLUINDIONE

REACTIONS (3)
  - Febrile neutropenia [Unknown]
  - Renal failure [Unknown]
  - Septic shock [Unknown]

NARRATIVE: CASE EVENT DATE: 20140531
